FAERS Safety Report 11873175 (Version 5)
Quarter: 2017Q2

REPORT INFORMATION
  Report Type: Report from Study
  Country: GB (occurrence: GB)
  Receive Date: 20151228
  Receipt Date: 20170413
  Transmission Date: 20170829
  Serious: Yes (Death, Hospitalization, Disabling)
  Sender: FDA-Public Use
  Company Number: PHFR2015GB009908

PATIENT
  Age: 50 Year
  Sex: Female

DRUGS (1)
  1. GILENYA [Suspect]
     Active Substance: FINGOLIMOD HYDROCHLORIDE
     Indication: MULTIPLE SCLEROSIS
     Dosage: 0.5 MG, QD
     Route: 048
     Dates: start: 20150520

REACTIONS (8)
  - Respiratory failure [Fatal]
  - Dyspnoea [Fatal]
  - Cough [Fatal]
  - Communication disorder [Fatal]
  - Pneumonia [Fatal]
  - Sepsis [Fatal]
  - Dysphagia [Fatal]
  - Lymphocyte count decreased [Fatal]

NARRATIVE: CASE EVENT DATE: 20151121
